FAERS Safety Report 6718276-4 (Version None)
Quarter: 2010Q2

REPORT INFORMATION
  Report Type: 
  Country: None (occurrence: None)
  Receive Date: 20100510
  Receipt Date: 20100429
  Transmission Date: 20101027
  Serious: Yes (Death, Hospitalization)
  Sender: FDA-Public Use
  Company Number: US-BAXTER-2010BH010816

PATIENT
  Sex: Male

DRUGS (2)
  1. DIANEAL [Suspect]
     Indication: PERITONEAL DIALYSIS
     Route: 033
     Dates: start: 20100419, end: 20100419
  2. ANCEF [Suspect]
     Indication: MEDICAL DEVICE COMPLICATION
     Dates: start: 20100406

REACTIONS (1)
  - CLOSTRIDIUM DIFFICILE COLITIS [None]
